FAERS Safety Report 25871768 (Version 1)
Quarter: 2025Q4

REPORT INFORMATION
  Report Type: Spontaneous
  Country: US (occurrence: US)
  Receive Date: 20251001
  Receipt Date: 20251001
  Transmission Date: 20260118
  Serious: Yes (Other)
  Sender: ASPIRO PHARMA
  Company Number: US-ASPIRO-ASP2025US05800

PATIENT
  Age: 21 Year
  Sex: Female

DRUGS (1)
  1. MAGNESIUM [Suspect]
     Active Substance: MAGNESIUM
     Indication: Seizure prophylaxis
     Dosage: UNK
     Route: 042

REACTIONS (2)
  - Hyperkalaemia [Recovered/Resolved]
  - Maternal exposure during pregnancy [Unknown]
